FAERS Safety Report 6822224-6 (Version None)
Quarter: 2010Q3

REPORT INFORMATION
  Report Type: 
  Country: None (occurrence: None)
  Receive Date: 20100708
  Receipt Date: 20100628
  Transmission Date: 20110219
  Serious: Yes (Other)
  Sender: FDA-Public Use
  Company Number: US-NOVOPROD-310826

PATIENT
  Sex: Female
  Weight: 111.57 kg

DRUGS (8)
  1. VICTOZA [Suspect]
     Indication: TYPE 2 DIABETES MELLITUS
     Dosage: 0.6 MG, QD
     Route: 058
     Dates: start: 20100507, end: 20100514
  2. VICTOZA [Suspect]
     Indication: WEIGHT DECREASED
     Dosage: 1.2 MG, QD
     Route: 058
     Dates: start: 20100515, end: 20100501
  3. VICTOZA [Suspect]
     Dosage: UNKNOWN
     Route: 058
     Dates: start: 20100626
  4. NOVOLOG [Suspect]
     Indication: TYPE 2 DIABETES MELLITUS
     Dosage: UNKNOWN
     Route: 058
     Dates: start: 20090101, end: 20100506
  5. NOVOLOG [Suspect]
     Dosage: UNKNOWN
     Route: 058
     Dates: start: 20100501, end: 20100625
  6. NOVOLIN N [Suspect]
     Indication: TYPE 2 DIABETES MELLITUS
     Dosage: UNKNOWN
     Route: 058
     Dates: start: 20090101, end: 20100506
  7. NOVOLIN N [Suspect]
     Dosage: UNKNOWN
     Route: 058
     Dates: start: 20100501, end: 20100525
  8. SIMVASTATIN [Concomitant]
     Indication: BLOOD CHOLESTEROL INCREASED

REACTIONS (5)
  - BLOOD GLUCOSE INCREASED [None]
  - DIARRHOEA [None]
  - EYE OPERATION [None]
  - HEADACHE [None]
  - NAUSEA [None]
